FAERS Safety Report 14952189 (Version 1)
Quarter: 2018Q2

REPORT INFORMATION
  Report Type: Spontaneous
  Country: US (occurrence: US)
  Receive Date: 20180530
  Receipt Date: 20180530
  Transmission Date: 20180711
  Serious: Yes (Other)
  Sender: FDA-Public Use
  Company Number: US-SA-2018SA081700

PATIENT
  Age: 64 Year
  Sex: Female
  Weight: 66 kg

DRUGS (20)
  1. BENAZEPRIL [Concomitant]
     Active Substance: BENAZEPRIL HYDROCHLORIDE
  2. BUSPIRONE [Concomitant]
     Active Substance: BUSPIRONE HYDROCHLORIDE
  3. NITROSTAT [Concomitant]
     Active Substance: NITROGLYCERIN
  4. NEOSAR [Concomitant]
     Active Substance: CYCLOPHOSPHAMIDE
  5. TEMAZEPAM. [Concomitant]
     Active Substance: TEMAZEPAM
  6. CYTOXAN [Suspect]
     Active Substance: CYCLOPHOSPHAMIDE
     Indication: CHEMOTHERAPY
  7. TAXOTERE [Suspect]
     Active Substance: DOCETAXEL
     Indication: BREAST CANCER
     Dosage: 122 MG,Q3W
     Route: 051
     Dates: start: 20141113, end: 20141113
  8. ATORVASTATIN [Concomitant]
     Active Substance: ATORVASTATIN
  9. ISOSORBIDE. [Concomitant]
     Active Substance: ISOSORBIDE
  10. FLUOXETINE [Concomitant]
     Active Substance: FLUOXETINE HYDROCHLORIDE
  11. PANTOPRAZOLE [Concomitant]
     Active Substance: PANTOPRAZOLE
  12. TRAMADOL. [Concomitant]
     Active Substance: TRAMADOL
  13. TAXOTERE [Suspect]
     Active Substance: DOCETAXEL
     Dosage: 122 MG,Q3W
     Route: 051
     Dates: start: 20120209, end: 20120209
  14. BISOPROLOL [Concomitant]
     Active Substance: BISOPROLOL
  15. METFORMIN [Concomitant]
     Active Substance: METFORMIN HYDROCHLORIDE
  16. CLONIDINE. [Concomitant]
     Active Substance: CLONIDINE
  17. AMIODARONE [Concomitant]
     Active Substance: AMIODARONE
  18. AMIODARONE [Concomitant]
     Active Substance: AMIODARONE
  19. WARFARIN SODIUM. [Concomitant]
     Active Substance: WARFARIN SODIUM
  20. DILTIAZEM. [Concomitant]
     Active Substance: DILTIAZEM

REACTIONS (2)
  - Psychological trauma [Unknown]
  - Alopecia [Not Recovered/Not Resolved]

NARRATIVE: CASE EVENT DATE: 2015
